FAERS Safety Report 6824119-0 (Version None)
Quarter: 2010Q3

REPORT INFORMATION
  Report Type: 
  Country: None (occurrence: None)
  Receive Date: 20100708
  Receipt Date: 20061002
  Transmission Date: 20110219
  Serious: No
  Sender: FDA-Public Use
  Company Number: US-PFIZER INC-2006120377

PATIENT
  Sex: Female
  Weight: 61.23 kg

DRUGS (8)
  1. CHANTIX [Suspect]
     Indication: SMOKING CESSATION THERAPY
     Dates: start: 20060901, end: 20060930
  2. PREMARIN [Concomitant]
  3. CYMBALTA [Concomitant]
  4. MONTELUKAST [Concomitant]
     Indication: SINUS DISORDER
  5. MONTELUKAST [Concomitant]
     Indication: MULTIPLE ALLERGIES
  6. ACETYLSALICYLIC ACID [Concomitant]
  7. VITAMIN D [Concomitant]
  8. AMBIEN [Concomitant]

REACTIONS (3)
  - DIZZINESS [None]
  - FEELING DRUNK [None]
  - VERTIGO [None]
